FAERS Safety Report 23878133 (Version 1)
Quarter: 2024Q2

REPORT INFORMATION
  Report Type: Spontaneous
  Country: US (occurrence: None)
  Receive Date: 20240520
  Receipt Date: 20240520
  Transmission Date: 20240716
  Serious: Yes (Life-Threatening, Hospitalization)
  Sender: FDA-Public Use
  Company Number: None

PATIENT
  Age: 77 Year
  Sex: Male
  Weight: 90 kg

DRUGS (1)
  1. SUCCINYLCHOLINE CHLORIDE [Suspect]
     Active Substance: SUCCINYLCHOLINE CHLORIDE
     Indication: Surgery
     Dosage: OTHER QUANTITY : UNKNOWN MG?FREQUENCY : UNKNOWN?
     Route: 042
     Dates: start: 20240403, end: 20240403

REACTIONS (5)
  - Hypotension [None]
  - Delayed recovery from anaesthesia [None]
  - Pseudocholinesterase deficiency [None]
  - Anaesthetic complication [None]
  - Post procedural complication [None]

NARRATIVE: CASE EVENT DATE: 20240403
